FAERS Safety Report 6958046-5 (Version None)
Quarter: 2010Q3

REPORT INFORMATION
  Report Type: 
  Country: None (occurrence: None)
  Receive Date: 20100831
  Receipt Date: 20100820
  Transmission Date: 20110219
  Serious: Yes (Death)
  Sender: FDA-Public Use
  Company Number: US-BAXTER-2010BH021981

PATIENT
  Age: 88 Year
  Sex: Male

DRUGS (4)
  1. GAMMAGARD LIQUID [Suspect]
     Indication: CHRONIC INFLAMMATORY DEMYELINATING POLYRADICULONEUROPATHY
     Route: 042
     Dates: start: 20080101, end: 20100716
  2. GAMMAGARD LIQUID [Suspect]
     Indication: OFF LABEL USE
     Route: 042
     Dates: start: 20080101, end: 20100716
  3. ACETAMINOPHEN [Concomitant]
     Indication: PREMEDICATION
     Route: 048
  4. DIPHENHYDRAMINE HCL [Concomitant]
     Indication: PREMEDICATION
     Route: 048

REACTIONS (1)
  - DEATH [None]
